FAERS Safety Report 10219026 (Version 3)
Quarter: 2014Q3

REPORT INFORMATION
  Report Type: Report from Study
  Country: AU (occurrence: AU)
  Receive Date: 20140605
  Receipt Date: 20140912
  Transmission Date: 20150326
  Serious: Yes (Hospitalization, Other)
  Sender: FDA-Public Use
  Company Number: PHHY2014AU068832

PATIENT

DRUGS (12)
  1. COLECALCIFEROL [Concomitant]
     Active Substance: CHOLECALCIFEROL
     Dosage: 25 UG, (IN MORNING)
  2. MIRTAZAPINE. [Concomitant]
     Active Substance: MIRTAZAPINE
     Dosage: 30 MG, (AT NIGHT)
  3. CLOZARIL [Suspect]
     Active Substance: CLOZAPINE
     Dosage: 300 MG, UNK
     Route: 048
     Dates: start: 201406
  4. SIMVASTATIN. [Concomitant]
     Active Substance: SIMVASTATIN
     Dosage: 40 MG, (AT NIGHT)
  5. ASPIRIN. [Concomitant]
     Active Substance: ASPIRIN
     Dosage: 100 MG, (IN MORNING)
  6. ATENOLOL. [Concomitant]
     Active Substance: ATENOLOL
     Dosage: 25 MG, (IN MORNING)
  7. COLOXYL C SENNA [Concomitant]
     Dosage: 2 DF, (50/8 X 2 TABLETS)
  8. RANITIDINE [Concomitant]
     Active Substance: RANITIDINE\RANITIDINE HYDROCHLORIDE
     Dosage: 150 MG, BID
  9. VITAMIN D3 [Concomitant]
     Active Substance: CHOLECALCIFEROL
     Dosage: UNK
  10. CLOZARIL [Suspect]
     Active Substance: CLOZAPINE
     Indication: SCHIZOPHRENIA
     Dosage: 400 MG, DAILY (350 MG AT NIGHT AND 50 MG AT MORNING)
     Route: 048
     Dates: end: 201406
  11. SODIUM VALPROATE [Concomitant]
     Active Substance: VALPROATE SODIUM
     Dosage: 1000 MG, BID
  12. LACTULOSE. [Concomitant]
     Active Substance: LACTULOSE
     Dosage: 20 ML, BID

REACTIONS (16)
  - Aortic dilatation [Unknown]
  - Anaemia [Unknown]
  - Dilatation ventricular [Unknown]
  - Tricuspid valve incompetence [Unknown]
  - Red blood cell sedimentation rate increased [Unknown]
  - Antipsychotic drug level increased [Unknown]
  - Haemoglobin decreased [Unknown]
  - Agitation [Recovering/Resolving]
  - Blood urea increased [Recovering/Resolving]
  - Insomnia [Recovering/Resolving]
  - Functional gastrointestinal disorder [Recovered/Resolved]
  - Constipation [Recovering/Resolving]
  - Aortic valve incompetence [Unknown]
  - Dehydration [Unknown]
  - N-terminal prohormone brain natriuretic peptide [Unknown]
  - Faecaloma [Recovered/Resolved]

NARRATIVE: CASE EVENT DATE: 20140423
